FAERS Safety Report 5044261-7 (Version None)
Quarter: 2006Q3

REPORT INFORMATION
  Report Type: 
  Country: None (occurrence: None)
  Receive Date: 20060706
  Receipt Date: 20060421
  Transmission Date: 20061208
  Serious: Yes (Hospitalization, Other)
  Sender: FDA-Public Use
  Company Number: CA-AVENTIS-200612478EU

PATIENT
  Age: 85 Year
  Sex: Male

DRUGS (5)
  1. NITROLINGUAL PUMPSPRAY [Suspect]
     Indication: ANGINA PECTORIS
     Route: 060
     Dates: start: 20010101
  2. ATENOLOL [Concomitant]
     Route: 048
     Dates: start: 20010101
  3. PLAVIX [Concomitant]
     Route: 048
     Dates: start: 20060328
  4. LIPITOR [Concomitant]
     Route: 048
     Dates: start: 20010101
  5. CLONAZEPAM [Concomitant]
     Route: 048
     Dates: start: 20060201

REACTIONS (7)
  - ANGINA PECTORIS [None]
  - CIRCUMSTANCE OR INFORMATION CAPABLE OF LEADING TO MEDICATION ERROR [None]
  - DEVICE FAILURE [None]
  - DRUG INEFFECTIVE [None]
  - MYOCARDIAL INFARCTION [None]
  - PHARMACEUTICAL PRODUCT COMPLAINT [None]
  - WRONG TECHNIQUE IN DRUG USAGE PROCESS [None]
